FAERS Safety Report 6482588-2 (Version None)
Quarter: 2009Q4

REPORT INFORMATION
  Report Type: 
  Country: None (occurrence: None)
  Receive Date: 20091209
  Receipt Date: 20091126
  Transmission Date: 20100525
  Serious: Yes (Death, Hospitalization)
  Sender: FDA-Public Use
  Company Number: BR-RANBAXY-2009R5-29473

PATIENT

DRUGS (3)
  1. METFORMIN HCL [Suspect]
     Indication: DIABETES MELLITUS
     Dosage: 850 MG, BID
     Route: 048
     Dates: start: 20091014, end: 20091014
  2. INSULLIN NP4 [Concomitant]
     Indication: DRUG USE FOR UNKNOWN INDICATION
     Dosage: UNK
     Dates: start: 20091013
  3. ARADOIS [Concomitant]
     Indication: DRUG USE FOR UNKNOWN INDICATION
     Dosage: 50 MG, QOD
     Route: 048
     Dates: start: 20091014

REACTIONS (7)
  - ASTHENIA [None]
  - CONVULSION [None]
  - DIZZINESS [None]
  - ERYTHEMA [None]
  - HYPERHIDROSIS [None]
  - HYPOTENSION [None]
  - TACHYCARDIA [None]
